FAERS Safety Report 20430095 (Version 1)
Quarter: 2022Q1

REPORT INFORMATION
  Report Type: Report from Study
  Country: US (occurrence: US)
  Receive Date: 20220204
  Receipt Date: 20220204
  Transmission Date: 20220423
  Serious: Yes (Life-Threatening, Hospitalization)
  Sender: FDA-Public Use
  Company Number: US-SERVIER-S20003354

PATIENT

DRUGS (4)
  1. ONCASPAR [Suspect]
     Active Substance: PEGASPARGASE
     Indication: Acute lymphocytic leukaemia
     Dosage: 2500 IU/M2, ON DAY 6
     Route: 042
     Dates: start: 20200302, end: 20200302
  2. DEXAMETHASONE [Suspect]
     Active Substance: DEXAMETHASONE
     Indication: Acute lymphocytic leukaemia
     Dosage: 6 MG/M2/DAY ON DAYS 1-10
     Route: 042
     Dates: start: 20200226, end: 20200328
  3. VINCRISTINE [Suspect]
     Active Substance: VINCRISTINE
     Indication: Acute lymphocytic leukaemia
     Dosage: 1.5 MG/M2, ON DAY 4
     Route: 042
     Dates: start: 20200229, end: 20200229
  4. CYTARABINE [Suspect]
     Active Substance: CYTARABINE
     Indication: Acute lymphocytic leukaemia
     Dosage: 40 MG TWICE WEEKLY
     Route: 037
     Dates: start: 20200226, end: 20200408

REACTIONS (6)
  - Fusarium infection [Unknown]
  - Hyperbilirubinaemia [Unknown]
  - Transaminases increased [Unknown]
  - Muscular weakness [Unknown]
  - Myalgia [Unknown]
  - Demyelinating polyneuropathy [Unknown]

NARRATIVE: CASE EVENT DATE: 20200324
